FAERS Safety Report 18216508 (Version 8)
Quarter: 2020Q4

REPORT INFORMATION
  Report Type: Spontaneous
  Country: US (occurrence: US)
  Receive Date: 20200901
  Receipt Date: 20201222
  Transmission Date: 20210113
  Serious: Yes (Hospitalization, Other)
  Sender: FDA-Public Use
  Company Number: US-GLAXOSMITHKLINE-US2020AMR173642

PATIENT
  Age: 38 Year
  Sex: Female

DRUGS (6)
  1. LETAIRIS [Concomitant]
     Active Substance: AMBRISENTAN
     Indication: PRODUCT USED FOR UNKNOWN INDICATION
     Dosage: UNK
  2. FLOLAN DILUENT PH 12 [Suspect]
     Active Substance: GLYCINE\MANNITOL\SODIUM CHLORIDE
     Indication: PULMONARY ARTERIAL HYPERTENSION
     Dosage: UNK
     Route: 065
     Dates: start: 20160714
  3. WARFARIN [Concomitant]
     Active Substance: WARFARIN
     Indication: PRODUCT USED FOR UNKNOWN INDICATION
     Dosage: UNK
     Route: 065
  4. FLOLAN DILUENT PH 12 [Suspect]
     Active Substance: GLYCINE\MANNITOL\SODIUM CHLORIDE
     Dosage: UNK
     Route: 065
     Dates: start: 20160714
  5. FLOLAN [Suspect]
     Active Substance: EPOPROSTENOL SODIUM
     Indication: PULMONARY ARTERIAL HYPERTENSION
     Dosage: 63 NG/KG/MIN, CO
     Route: 065
     Dates: start: 20180216
  6. FLOLAN [Suspect]
     Active Substance: EPOPROSTENOL SODIUM
     Indication: PULMONARY ARTERIAL HYPERTENSION
     Dosage: 63 NG/KG/MIN, CO
     Route: 065
     Dates: start: 20180216

REACTIONS (22)
  - Vaginal haemorrhage [Unknown]
  - Syncope [Unknown]
  - Asthenia [Unknown]
  - Myomectomy [Unknown]
  - Epistaxis [Unknown]
  - Peripheral swelling [Unknown]
  - Uterine neoplasm [Unknown]
  - Haemorrhage [Unknown]
  - Menorrhagia [Unknown]
  - Hospitalisation [Unknown]
  - Depressed mood [Unknown]
  - Uterine leiomyoma [Unknown]
  - Headache [Unknown]
  - Anaemia [Unknown]
  - Abdominal pain [Unknown]
  - Vomiting [Unknown]
  - Pallor [Unknown]
  - Memory impairment [Unknown]
  - Joint swelling [Unknown]
  - Fatigue [Unknown]
  - Decreased appetite [Unknown]
  - Anxiety [Unknown]

NARRATIVE: CASE EVENT DATE: 20201029
